FAERS Safety Report 8999765 (Version 1)
Quarter: 2013Q1

REPORT INFORMATION
  Report Type: Spontaneous
  Country: CA (occurrence: CA)
  Receive Date: 20130102
  Receipt Date: 20130102
  Transmission Date: 20140127
  Serious: Yes (Hospitalization)
  Sender: FDA-Public Use
  Company Number: CA-CUBIST PHARMACEUTICAL, INC.-2012CBST000083

PATIENT
  Age: 72 Year
  Sex: Male
  Weight: 83 kg

DRUGS (2)
  1. CUBICIN [Suspect]
     Indication: STAPHYLOCOCCAL INFECTION
     Dosage: 600 MG, Q24H
     Route: 042
     Dates: start: 20120416, end: 20120512
  2. VANCOMYCIN [Concomitant]
     Indication: STAPHYLOCOCCAL INFECTION
     Dosage: UNK
     Dates: start: 20120410, end: 20120416

REACTIONS (2)
  - Abdominal abscess [Unknown]
  - Antimicrobial susceptibility test resistant [Unknown]
